FAERS Safety Report 6166739-5 (Version None)
Quarter: 2009Q2

REPORT INFORMATION
  Report Type: 
  Country: None (occurrence: None)
  Receive Date: 20090424
  Receipt Date: 20090414
  Transmission Date: 20091009
  Serious: Yes (Hospitalization)
  Sender: FDA-Public Use
  Company Number: FR-PFIZER INC-2008075383

PATIENT

DRUGS (1)
  1. SUNITINIB MALATE [Suspect]
     Indication: BREAST CANCER METASTATIC
     Dosage: 37.5 MG, 1X/DAY
     Route: 048
     Dates: start: 20080726, end: 20080823

REACTIONS (2)
  - NERVOUS SYSTEM DISORDER [None]
  - PLEURAL EFFUSION [None]
